FAERS Safety Report 10152328 (Version 1)
Quarter: 2014Q2

REPORT INFORMATION
  Report Type: Spontaneous
  Country: JP (occurrence: None)
  Receive Date: 20140501
  Receipt Date: 20140501
  Transmission Date: 20141212
  Serious: Yes (Other)
  Sender: FDA-Public Use
  Company Number: JP-015530

PATIENT
  Sex: Male

DRUGS (1)
  1. DEGARELIX (GONAX) [Suspect]
     Indication: PROSTATE CANCER
     Route: 058

REACTIONS (1)
  - Cellulitis [None]
